FAERS Safety Report 6145358-0 (Version None)
Quarter: 2009Q2

REPORT INFORMATION
  Report Type: 
  Country: None (occurrence: None)
  Receive Date: 20090406
  Receipt Date: 20090326
  Transmission Date: 20091009
  Serious: Yes (Other)
  Sender: FDA-Public Use
  Company Number: US-JNJCH-2009006573

PATIENT
  Age: 82 Year
  Sex: Female
  Weight: 59.4 kg

DRUGS (1)
  1. BENADRYL ALLERGY KAPGELS [Suspect]
     Indication: DRUG USE FOR UNKNOWN INDICATION
     Dosage: TEXT:ONE KAPGEL A DAY
     Route: 048

REACTIONS (4)
  - DIABETES MELLITUS [None]
  - FEELING ABNORMAL [None]
  - INSOMNIA [None]
  - PAIN [None]
